FAERS Safety Report 4552201-X (Version None)
Quarter: 2004Q4

REPORT INFORMATION
  Report Type: 
  Country: None (occurrence: None)
  Receive Date: 20041217
  Receipt Date: 20040726
  Transmission Date: 20050328
  Serious: No
  Sender: FDA-Public Use
  Company Number: 2004-BP-06251BP

PATIENT
  Age: 73 Year
  Sex: Male

DRUGS (10)
  1. SPIRIVA [Suspect]
     Indication: CHRONIC OBSTRUCTIVE AIRWAYS DISEASE
     Dosage: 18 MCG (18 MCG, 1 IN 1 D),IH
     Dates: start: 20040624
  2. ADVAIR DISKUS 100/50 [Suspect]
     Indication: CHRONIC OBSTRUCTIVE AIRWAYS DISEASE
     Dates: start: 20040601
  3. MEDROL [Suspect]
     Indication: CHRONIC OBSTRUCTIVE AIRWAYS DISEASE
     Dates: start: 20040601
  4. COMBIVENT [Concomitant]
  5. ACETYLSALICYLIC ACID SRT [Concomitant]
  6. LOPRESSOR [Concomitant]
  7. VITAMINS (VITAMINS) [Concomitant]
  8. ZANTAC [Concomitant]
  9. SONATA [Concomitant]
  10. NORVASC [Concomitant]

REACTIONS (1)
  - HOARSENESS [None]
